FAERS Safety Report 6078262-7 (Version None)
Quarter: 2009Q1

REPORT INFORMATION
  Report Type: 
  Country: None (occurrence: None)
  Receive Date: 20090213
  Receipt Date: 20090202
  Transmission Date: 20090719
  Serious: Yes (Disabling, Other)
  Sender: FDA-Public Use
  Company Number: JP-PFIZER INC-2009168217

PATIENT

DRUGS (4)
  1. ZOLOFT [Suspect]
     Indication: DEPRESSION
     Dosage: 25 MG, 1X/DAY
     Route: 048
     Dates: start: 20070824
  2. ZOLOFT [Suspect]
     Indication: PANIC DISORDER
  3. SOLANAX [Concomitant]
     Dosage: UNK
     Route: 048
     Dates: start: 20070824
  4. SULPIRIDE [Concomitant]
     Dosage: UNK
     Route: 048
     Dates: start: 20071228

REACTIONS (1)
  - DEMENTIA [None]
